FAERS Safety Report 23378173 (Version 1)
Quarter: 2024Q1

REPORT INFORMATION
  Report Type: Spontaneous
  Country: US (occurrence: None)
  Receive Date: 20240105
  Receipt Date: 20240105
  Transmission Date: 20240410
  Serious: Yes (Hospitalization)
  Sender: FDA-Public Use
  Company Number: None

PATIENT
  Sex: Male

DRUGS (1)
  1. REPAGLINIDE [Suspect]
     Active Substance: REPAGLINIDE
     Dosage: 0.5 MG 3 TIMES A DAY ORAL
     Route: 048
     Dates: start: 20230123

REACTIONS (2)
  - Hypoglycaemia [None]
  - Seizure [None]
